FAERS Safety Report 22992868 (Version 2)
Quarter: 2023Q4

REPORT INFORMATION
  Report Type: Spontaneous
  Country: JP (occurrence: JP)
  Receive Date: 20230927
  Receipt Date: 20231010
  Transmission Date: 20240110
  Serious: Yes (Hospitalization)
  Sender: FDA-Public Use
  Company Number: JP-TEVA-2023-JP-2929803

PATIENT
  Age: 86 Year
  Sex: Male
  Weight: 45.6 kg

DRUGS (15)
  1. PIPERACILLIN SODIUM\TAZOBACTAM SODIUM [Suspect]
     Active Substance: PIPERACILLIN SODIUM\TAZOBACTAM SODIUM
     Indication: Graft infection
     Dosage: 6.75 GRAM DAILY; 2.25G EVERY 8 HOURS
     Route: 042
  2. PIPERACILLIN SODIUM\TAZOBACTAM SODIUM [Suspect]
     Active Substance: PIPERACILLIN SODIUM\TAZOBACTAM SODIUM
     Indication: Arterial graft
  3. PREDNISOLONE [Suspect]
     Active Substance: PREDNISOLONE
     Indication: Drug reaction with eosinophilia and systemic symptoms
     Dosage: 10 MILLIGRAM DAILY; ONCE A DAY
     Route: 048
  4. AMOXICILLIN\CLAVULANIC ACID [Suspect]
     Active Substance: AMOXICILLIN\CLAVULANIC ACID
     Indication: Graft infection
     Route: 065
  5. AMOXICILLIN\CLAVULANIC ACID [Suspect]
     Active Substance: AMOXICILLIN\CLAVULANIC ACID
     Indication: Arterial graft
  6. FEBUXOSTAT [Concomitant]
     Active Substance: FEBUXOSTAT
     Indication: Product used for unknown indication
     Dosage: 10 MILLIGRAM DAILY; ONCE A DAY
     Route: 065
  7. GALANTAMINE [Concomitant]
     Active Substance: GALANTAMINE
     Indication: Product used for unknown indication
     Dosage: 8 MILLIGRAM DAILY; ONCE A DAY
     Route: 065
  8. AMLODIPINE [Concomitant]
     Active Substance: AMLODIPINE BESYLATE
     Indication: Product used for unknown indication
     Dosage: 5 MILLIGRAM DAILY; ONCE A DAY
     Route: 065
  9. TOLVAPTAN [Concomitant]
     Active Substance: TOLVAPTAN
     Indication: Product used for unknown indication
     Dosage: 7.5 MILLIGRAM DAILY; ONCE A DAY
     Route: 065
  10. SPIRONOLACTONE [Concomitant]
     Active Substance: SPIRONOLACTONE
     Indication: Product used for unknown indication
     Dosage: 25 MILLIGRAM DAILY; ONCE A DAY
     Route: 065
  11. AZOSEMIDE [Concomitant]
     Active Substance: AZOSEMIDE
     Indication: Product used for unknown indication
     Dosage: 60 MILLIGRAM DAILY; ONCE A DAY
     Route: 065
  12. TRICHLORMETHIAZIDE [Concomitant]
     Active Substance: TRICHLORMETHIAZIDE
     Indication: Product used for unknown indication
     Dosage: 1 MILLIGRAM DAILY; ONCE A DAY
     Route: 065
  13. FEXOFENADINE [Concomitant]
     Active Substance: FEXOFENADINE HYDROCHLORIDE
     Indication: Product used for unknown indication
     Dosage: 240 MILLIGRAM DAILY; ONCE A DAY
     Route: 065
  14. ESOMEPRAZOLE [Concomitant]
     Active Substance: ESOMEPRAZOLE
     Indication: Product used for unknown indication
     Dosage: 20 MILLIGRAM DAILY; ONCE A DAY
     Route: 065
  15. GABAPENTIN [Concomitant]
     Active Substance: GABAPENTIN
     Indication: Product used for unknown indication
     Dosage: 50 MILLIGRAM DAILY; ONCE A DAY
     Route: 065

REACTIONS (11)
  - Drug reaction with eosinophilia and systemic symptoms [Recovered/Resolved]
  - Oliguria [Not Recovered/Not Resolved]
  - Renal impairment [Not Recovered/Not Resolved]
  - Renal failure [Not Recovered/Not Resolved]
  - Acute kidney injury [Not Recovered/Not Resolved]
  - Urethral injury [Not Recovered/Not Resolved]
  - Cardiac dysfunction [Unknown]
  - Liver injury [Unknown]
  - Pneumocystis jirovecii pneumonia [Recovering/Resolving]
  - Cytomegalovirus infection [Recovering/Resolving]
  - Aspergillus infection [Recovering/Resolving]
